FAERS Safety Report 6450639-7 (Version None)
Quarter: 2009Q4

REPORT INFORMATION
  Report Type: 
  Country: None (occurrence: None)
  Receive Date: 20091123
  Receipt Date: 20091111
  Transmission Date: 20100525
  Serious: Yes (Other)
  Sender: FDA-Public Use
  Company Number: US-BAYER-US-2005-009872

PATIENT
  Age: 33 Year
  Sex: Female
  Weight: 67 kg

DRUGS (1)
  1. MIRENA [Suspect]
     Indication: CONTRACEPTION
     Dosage: 20 ?G/DAY, CONT
     Route: 015
     Dates: start: 20041202

REACTIONS (5)
  - ABDOMINAL PAIN LOWER [None]
  - DEVICE DISLOCATION [None]
  - MENSTRUAL DISORDER [None]
  - POST PROCEDURAL HAEMORRHAGE [None]
  - PROCEDURAL PAIN [None]
